FAERS Safety Report 5376240-4 (Version None)
Quarter: 2007Q3

REPORT INFORMATION
  Report Type: 
  Country: None (occurrence: None)
  Receive Date: 20070702
  Receipt Date: 20070621
  Transmission Date: 20080115
  Serious: Yes (Death, Life-Threatening, Hospitalization, Disabling)
  Sender: FDA-Public Use
  Company Number: GB-ROCHE-504616

PATIENT
  Age: 62 Year
  Sex: Female
  Weight: 75 kg

DRUGS (1)
  1. CAPECITABINE [Suspect]
     Indication: DRUG USE FOR UNKNOWN INDICATION
     Route: 048
     Dates: start: 20060929, end: 20061013

REACTIONS (3)
  - DIARRHOEA [None]
  - MUCOSAL INFLAMMATION [None]
  - NEUTROPENIC SEPSIS [None]
